FAERS Safety Report 12579908 (Version 3)
Quarter: 2016Q3

REPORT INFORMATION
  Report Type: Spontaneous
  Country: JP (occurrence: JP)
  Receive Date: 20160721
  Receipt Date: 20160908
  Transmission Date: 20161109
  Serious: Yes (Hospitalization, Other)
  Sender: FDA-Public Use
  Company Number: JP-TEVA-679161ISR

PATIENT
  Age: 70 Year
  Sex: Female

DRUGS (5)
  1. LANSOPRAZOLE. [Suspect]
     Active Substance: LANSOPRAZOLE
     Indication: ANALGESIC THERAPY
  2. SITAGLIPTIN [Concomitant]
     Active Substance: SITAGLIPTIN
     Route: 065
  3. ALFACALCIDOL [Concomitant]
     Active Substance: ALFACALCIDOL
     Route: 065
  4. MELOXICAM. [Suspect]
     Active Substance: MELOXICAM
     Indication: ANALGESIC THERAPY
  5. EDOXABAN [Concomitant]
     Active Substance: EDOXABAN TOSYLATE
     Route: 065

REACTIONS (3)
  - Scar [Recovered/Resolved]
  - Colitis microscopic [Recovered/Resolved]
  - Oesophageal mucosal tear [Recovered/Resolved]
